FAERS Safety Report 7177166-6 (Version None)
Quarter: 2010Q4

REPORT INFORMATION
  Report Type: 
  Country: None (occurrence: None)
  Receive Date: 20101220
  Receipt Date: 20101210
  Transmission Date: 20110411
  Serious: Yes (Death)
  Sender: FDA-Public Use
  Company Number: JP-ROCHE-726527

PATIENT
  Sex: Male

DRUGS (4)
  1. AVASTIN [Suspect]
     Dosage: DOSAGE WAS UNCERTAIN.
     Route: 041
     Dates: start: 20081126, end: 20100127
  2. FLUOROURACIL [Concomitant]
     Dosage: INTRAVENOUS BOLUS FOLLOWED BY DRIP.
     Route: 041
  3. IRINOTECAN HCL [Concomitant]
     Route: 042
  4. LEVOFOLINATE [Concomitant]
     Dosage: LEVOFOLINATE CALCIUM(LEVOFOLINATE CALCIUM)
     Route: 041

REACTIONS (3)
  - DISEASE PROGRESSION [None]
  - PROTEINURIA [None]
  - URINARY TRACT INFECTION [None]
